FAERS Safety Report 9334077 (Version 2)
Quarter: 2013Q4

REPORT INFORMATION
  Report Type: Spontaneous
  Country: US (occurrence: US)
  Receive Date: 20130606
  Receipt Date: 20131008
  Transmission Date: 20140711
  Serious: No
  Sender: FDA-Public Use
  Company Number: US-AMGEN-USASP2013011069

PATIENT
  Age: 81 Year
  Sex: Female
  Weight: 60.32 kg

DRUGS (8)
  1. PROLIA [Suspect]
     Indication: OSTEOPOROSIS POSTMENOPAUSAL
     Dosage: 60 MG, Q6MO
  2. LOVASTATIN [Concomitant]
  3. OMEPRAZOLE [Concomitant]
  4. MULTIVITAMIN                       /00097801/ [Concomitant]
  5. VITAMIN C                          /00008001/ [Concomitant]
  6. CALCIUM WITH VITAMIN D3 [Concomitant]
  7. POTASSIUM [Concomitant]
  8. MAGNESIUM [Concomitant]

REACTIONS (3)
  - Gingival bleeding [Unknown]
  - Gingival recession [Unknown]
  - Tooth fracture [Unknown]
